FAERS Safety Report 8273977-4 (Version None)
Quarter: 2012Q2

REPORT INFORMATION
  Report Type: 
  Country: None (occurrence: None)
  Receive Date: 20120411
  Receipt Date: 20120402
  Transmission Date: 20120825
  Serious: Yes (Hospitalization, Other)
  Sender: FDA-Public Use
  Company Number: US-JNJFOC-20120205345

PATIENT
  Sex: Female
  Weight: 60.78 kg

DRUGS (7)
  1. VITAMIN D [Concomitant]
     Indication: NUTRITIONAL SUPPORT
     Route: 048
     Dates: start: 20110101
  2. REMICADE [Suspect]
     Indication: RHEUMATOID ARTHRITIS
     Route: 042
     Dates: end: 20110101
  3. METHOTREXATE [Concomitant]
     Indication: RHEUMATOID ARTHRITIS
     Route: 048
  4. FOLIC ACID [Concomitant]
     Indication: NUTRITIONAL SUPPORT
     Route: 048
  5. ALL OTHER THERAPEUTICS [Concomitant]
     Indication: BLOOD PRESSURE
     Route: 048
     Dates: start: 20090101
  6. MULTI-VITAMIN [Concomitant]
     Indication: NUTRITIONAL SUPPORT
     Route: 048
  7. OMEPRAZOLE [Concomitant]
     Indication: GASTRIC DISORDER
     Route: 048

REACTIONS (2)
  - DIABETES MELLITUS [None]
  - PNEUMONIA [None]
